FAERS Safety Report 6750237-1 (Version None)
Quarter: 2010Q2

REPORT INFORMATION
  Report Type: 
  Country: None (occurrence: None)
  Receive Date: 20100601
  Receipt Date: 20100527
  Transmission Date: 20101027
  Serious: Yes (Hospitalization)
  Sender: FDA-Public Use
  Company Number: JP-B.I. PHARMACEUTICALS,INC./RIDGEFIELD-2010-BP-06000NB

PATIENT
  Age: 80 Year
  Sex: Male
  Weight: 44.6 kg

DRUGS (9)
  1. SPIRIVA [Suspect]
     Indication: CHRONIC OBSTRUCTIVE PULMONARY DISEASE
     Dosage: 18 MCG
     Route: 055
     Dates: start: 20100326, end: 20100419
  2. PARIET [Concomitant]
     Dosage: 10 MG
     Route: 048
  3. FUROSEMIDE [Concomitant]
     Dosage: 40 MG
     Route: 048
  4. DIGOSIN [Concomitant]
     Dosage: 0.25 MG
     Route: 048
  5. PREDONINE [Concomitant]
     Dosage: 5 MG
     Route: 048
  6. MUCOTRON [Concomitant]
     Dosage: 1500 MG
     Route: 048
  7. MAGMITT [Concomitant]
     Dosage: 1980 MG
     Route: 048
  8. SELBEX [Concomitant]
     Dosage: 3DF
     Route: 048
  9. PURSENNID [Concomitant]
     Dosage: 12 MG
     Route: 048

REACTIONS (4)
  - ATONIC SEIZURES [None]
  - CONSTIPATION [None]
  - URINARY RETENTION [None]
  - URINARY TRACT INFECTION [None]
